FAERS Safety Report 14441484 (Version 3)
Quarter: 2018Q2

REPORT INFORMATION
  Report Type: Spontaneous
  Country: US (occurrence: US)
  Receive Date: 20180125
  Receipt Date: 20180427
  Transmission Date: 20180711
  Serious: Yes (Other)
  Sender: FDA-Public Use
  Company Number: US-DSJP-DSU-2017-145267

PATIENT

DRUGS (1)
  1. AZOR [Suspect]
     Active Substance: AMLODIPINE BESYLATE\OLMESARTAN MEDOXOMIL
     Indication: HYPERTENSION
     Dosage: 10-40MG, QD
     Route: 048
     Dates: start: 20071219, end: 20171206

REACTIONS (7)
  - Steroid withdrawal syndrome [Unknown]
  - Gastroenteritis [Unknown]
  - Diverticulum [Unknown]
  - Inflammatory bowel disease [Unknown]
  - Large intestine polyp [Recovered/Resolved]
  - Intestinal ulcer [Unknown]
  - Haemorrhoids [Unknown]

NARRATIVE: CASE EVENT DATE: 20090601
